FAERS Safety Report 10379863 (Version 1)
Quarter: 2014Q1

REPORT INFORMATION
  Report Type: Spontaneous
  Country: US (occurrence: None)
  Receive Date: 20140306
  Receipt Date: 20140306
  Transmission Date: 20141002
  Serious: Yes (Hospitalization, Other)
  Sender: FDA-Public Use
  Company Number: 163-21880-13090510

PATIENT
  Age: 78 Year
  Sex: Female

DRUGS (7)
  1. REVLIMID [Suspect]
     Indication: MYELODYSPLASTIC SYNDROME
     Route: 048
     Dates: start: 20110930
  2. SYSTANE (RHINARIS) [Concomitant]
  3. OMEPRAZOLE [Concomitant]
  4. IRON [Concomitant]
  5. FOLIC ACID [Concomitant]
  6. ARANSEP (DARBEPOETIN ALFA) [Concomitant]
  7. VITAMIN B-6 (PYRIDOXINE HYDROCHLORIDE) [Concomitant]

REACTIONS (1)
  - Full blood count decreased [None]
